FAERS Safety Report 4767824-2 (Version None)
Quarter: 2005Q3

REPORT INFORMATION
  Report Type: 
  Country: None (occurrence: None)
  Receive Date: 20050913
  Receipt Date: 20050825
  Transmission Date: 20060218
  Serious: Yes (Other)
  Sender: FDA-Public Use
  Company Number: DSA_26914_2005

PATIENT

DRUGS (1)
  1. ATIVAN [Suspect]
     Dosage: DF

REACTIONS (1)
  - BRAIN DAMAGE [None]
